FAERS Safety Report 4833153-1 (Version None)
Quarter: 2005Q4

REPORT INFORMATION
  Report Type: 
  Country: None (occurrence: None)
  Receive Date: 20051117
  Receipt Date: 20051104
  Transmission Date: 20060501
  Serious: Yes (Hospitalization)
  Sender: FDA-Public Use
  Company Number: 2005144110

PATIENT
  Age: 16 Year
  Sex: Female

DRUGS (1)
  1. ZMAX [Suspect]
     Indication: TONSILLITIS STREPTOCOCCAL
     Dosage: (600 MG)

REACTIONS (1)
  - THERAPY NON-RESPONDER [None]
